FAERS Safety Report 6244440-7 (Version None)
Quarter: 2009Q2

REPORT INFORMATION
  Report Type: 
  Country: None (occurrence: None)
  Receive Date: 20090625
  Receipt Date: 20090622
  Transmission Date: 20091009
  Serious: No
  Sender: FDA-Public Use
  Company Number: US-JNJFOC-20090608087

PATIENT
  Age: 40 Year
  Sex: Female

DRUGS (1)
  1. INVEGA [Suspect]
     Indication: MAJOR DEPRESSION
     Route: 048

REACTIONS (4)
  - BREAST TENDERNESS [None]
  - GENERALISED OEDEMA [None]
  - JOINT SWELLING [None]
  - RASH [None]
